FAERS Safety Report 23843371 (Version 1)
Quarter: 2024Q2

REPORT INFORMATION
  Report Type: Report from Study
  Country: AR (occurrence: AR)
  Receive Date: 20240510
  Receipt Date: 20240510
  Transmission Date: 20240716
  Serious: Yes (Hospitalization)
  Sender: FDA-Public Use
  Company Number: AR-ABBVIE-5754468

PATIENT
  Sex: Male

DRUGS (2)
  1. HUMIRA [Suspect]
     Active Substance: ADALIMUMAB
     Indication: Colitis ulcerative
     Route: 058
     Dates: start: 2019, end: 2020
  2. RINVOQ [Suspect]
     Active Substance: UPADACITINIB
     Indication: Colitis ulcerative
     Dosage: 30 MILLIGRAM
     Route: 048
     Dates: start: 20230911

REACTIONS (4)
  - Colitis ulcerative [Recovered/Resolved]
  - Drug ineffective [Unknown]
  - Cytomegalovirus infection [Recovered/Resolved]
  - Bacteraemia [Unknown]

NARRATIVE: CASE EVENT DATE: 20230101
